FAERS Safety Report 24288469 (Version 1)
Quarter: 2024Q3

REPORT INFORMATION
  Report Type: Spontaneous
  Country: ET (occurrence: ET)
  Receive Date: 20240906
  Receipt Date: 20240906
  Transmission Date: 20241017
  Serious: Yes (Hospitalization)
  Sender: ACCORD
  Company Number: ET-Accord-443762

PATIENT
  Age: 50 Year
  Sex: Male

DRUGS (2)
  1. CISPLATIN [Suspect]
     Active Substance: CISPLATIN
     Indication: Cholangiocarcinoma
     Dosage: ON DAY 1 OF A 21-DAY CYCLE
  2. GEMCITABINE [Concomitant]
     Active Substance: GEMCITABINE
     Indication: Cholangiocarcinoma
     Dosage: 1000 MG/M2 ON DAYS 1 AND 8 OF A 21-DAY CYCLE

REACTIONS (2)
  - Peripheral ischaemia [Recovered/Resolved]
  - Peripheral artery thrombosis [Recovered/Resolved]
